FAERS Safety Report 5362864-7 (Version None)
Quarter: 2007Q2

REPORT INFORMATION
  Report Type: 
  Country: None (occurrence: None)
  Receive Date: 20070612
  Receipt Date: 20061211
  Transmission Date: 20071010
  Serious: Yes (Hospitalization)
  Sender: FDA-Public Use
  Company Number: 5007744

PATIENT
  Age: 60 Year
  Sex: Female

DRUGS (6)
  1. BISOPROLOL FUMARATE [Suspect]
     Indication: HYPERTENSION
     Dosage: UNKNOWN ORAL
     Route: 048
     Dates: end: 20010215
  2. LODOZ(TABLET) (HYDROCHLOROTHIAZIDE, BISOPROLOL FUMARATE) [Suspect]
     Indication: DRUG USE FOR UNKNOWN INDICATION
     Dosage: ORAL
     Route: 048
     Dates: start: 20010215
  3. IRBESARTAN [Suspect]
     Indication: DRUG USE FOR UNKNOWN INDICATION
     Dosage: (300 MG) ORAL
     Route: 048
     Dates: start: 20010215, end: 20010515
  4. ATORVASTATIN CALCIUM [Suspect]
     Indication: HYPERCHOLESTEROLAEMIA
     Dosage: ORAL
     Route: 048
     Dates: start: 19980615, end: 20010415
  5. ALDACTONE [Suspect]
     Indication: DRUG USE FOR UNKNOWN INDICATION
     Dosage: UNKNOWN (UNKNOWN) ORAL
     Route: 048
     Dates: start: 20010515
  6. CERIVASTATIN SODIUM(CERIVASTATIN SODIUM) [Suspect]
     Indication: HYPERCHOLESTEROLAEMIA
     Dosage: ORAL
     Route: 048
     Dates: start: 20010530, end: 20010606

REACTIONS (3)
  - ERECTILE DYSFUNCTION [None]
  - MONOPARESIS [None]
  - RHABDOMYOLYSIS [None]
